FAERS Safety Report 12603637 (Version 3)
Quarter: 2016Q3

REPORT INFORMATION
  Report Type: Spontaneous
  Country: US (occurrence: US)
  Receive Date: 20160728
  Receipt Date: 20160909
  Transmission Date: 20161109
  Serious: No
  Sender: FDA-Public Use
  Company Number: US-PFIZER INC-2016356715

PATIENT
  Age: 55 Year
  Sex: Female
  Weight: 101.15 kg

DRUGS (22)
  1. DIAZEPAM. [Concomitant]
     Active Substance: DIAZEPAM
     Indication: ANXIETY
     Dosage: 15 MG, DAILY
  2. TYLENOL [Concomitant]
     Active Substance: ACETAMINOPHEN
     Dosage: 4000 MG, DAILY
  3. CYCLOBENZAPRINE [Concomitant]
     Active Substance: CYCLOBENZAPRINE
     Indication: MYALGIA
     Dosage: 10 MG, 3X/DAY
  4. SYSTANE (HYPROMELLOSE 2910 (4000 MPA.S)) [Concomitant]
     Active Substance: HYPROMELLOSE 2910 (4000 MPA.S)
     Indication: DRY EYE
     Dosage: 1 GTT, UNK
  5. TRAZODONE [Concomitant]
     Active Substance: TRAZODONE HYDROCHLORIDE
     Indication: DEPRESSION
     Dosage: 300 MG, DAILY
  6. DIAZEPAM. [Concomitant]
     Active Substance: DIAZEPAM
     Dosage: 20 MG, DAILY
  7. ATORVASTATIN [Concomitant]
     Active Substance: ATORVASTATIN
     Indication: BLOOD CHOLESTEROL
     Dosage: 20 MG, DAILY
  8. MYCOPHENOLATE [Concomitant]
     Active Substance: MYCOPHENOLIC ACID
     Dosage: 1000 MG, UNK (1000 MG THEREAFTER)
  9. BISACODYL. [Concomitant]
     Active Substance: BISACODYL
     Dosage: 10 MG, AS NEEDED
  10. ROZEREM [Concomitant]
     Active Substance: RAMELTEON
     Indication: SLEEP DISORDER
     Dosage: 8 MG, DAILY
  11. PRISTIQ EXTENDED-RELEASE [Concomitant]
     Active Substance: DESVENLAFAXINE SUCCINATE
     Indication: DEPRESSION
     Dosage: 25 MG, DAILY
  12. OXYCODONE [Concomitant]
     Active Substance: OXYCODONE
     Indication: PAIN
     Dosage: 60 MG, DAILY
  13. METHYLPREDNISOLONE. [Concomitant]
     Active Substance: METHYLPREDNISOLONE
     Indication: PAIN
     Dosage: 12 MG, DAILY
  14. FOLIC ACID. [Concomitant]
     Active Substance: FOLIC ACID
     Dosage: 1 MG, DAILY
  15. MYCOPHENOLATE [Concomitant]
     Active Substance: MYCOPHENOLIC ACID
     Dosage: 500 MG, DAILY (500 MG DAILY FOR 1 WK )
  16. CELEBREX [Suspect]
     Active Substance: CELECOXIB
     Dosage: 100 MG, 2X/DAY
     Route: 048
  17. GABAPENTIN. [Concomitant]
     Active Substance: GABAPENTIN
     Indication: ANXIETY
     Dosage: 1200 MG, DAILY (4X A DAY) (DAILY)
  18. TRAZODONE [Concomitant]
     Active Substance: TRAZODONE HYDROCHLORIDE
     Indication: SLEEP DISORDER
  19. CYMBALTA [Concomitant]
     Active Substance: DULOXETINE HYDROCHLORIDE
     Indication: INFLAMMATION
     Dosage: 30 MG, DAILY
  20. CELEBREX [Suspect]
     Active Substance: CELECOXIB
     Indication: INFLAMMATION
     Dosage: 200 MG, 1X/DAY
     Route: 048
     Dates: start: 201604, end: 201604
  21. BUSPIRONE [Concomitant]
     Active Substance: BUSPIRONE HYDROCHLORIDE
     Indication: ANXIETY
     Dosage: 10 MG, DAILY
  22. LUMIGAN [Concomitant]
     Active Substance: BIMATOPROST
     Dosage: 0.1 %, UNK

REACTIONS (3)
  - Product use issue [Unknown]
  - Anxiety [Unknown]
  - Heart rate increased [Unknown]

NARRATIVE: CASE EVENT DATE: 201604
